FAERS Safety Report 9386979 (Version 1)
Quarter: 2013Q3

REPORT INFORMATION
  Report Type: Report from Study
  Country: CA (occurrence: CA)
  Receive Date: 20130708
  Receipt Date: 20130708
  Transmission Date: 20140515
  Serious: Yes (Hospitalization, Other)
  Sender: FDA-Public Use
  Company Number: CA-JNJFOC-20130620920

PATIENT
  Age: 47 Year
  Sex: Female
  Weight: 44 kg

DRUGS (3)
  1. REMICADE [Suspect]
     Indication: CROHN^S DISEASE
     Route: 042
     Dates: start: 201109
  2. SOLU CORTEF [Concomitant]
     Route: 065
  3. PREDNISONE [Concomitant]
     Route: 065
     Dates: start: 2001

REACTIONS (4)
  - Intestinal operation [Unknown]
  - Abdominal hernia [Unknown]
  - Diarrhoea [Not Recovered/Not Resolved]
  - Alopecia [Unknown]
